FAERS Safety Report 4289839-3 (Version None)
Quarter: 2004Q1

REPORT INFORMATION
  Report Type: 
  Country: None (occurrence: None)
  Receive Date: 20040209
  Receipt Date: 20031205
  Transmission Date: 20041129
  Serious: No
  Sender: FDA-Public Use
  Company Number: US-GLAXOSMITHKLINE-A0443051A

PATIENT
  Sex: Female

DRUGS (4)
  1. PAXIL [Suspect]
     Route: 048
  2. LAMICTAL [Concomitant]
     Route: 048
  3. TRILEPTAL [Concomitant]
  4. SEROQUEL [Concomitant]

REACTIONS (1)
  - DIZZINESS [None]
